FAERS Safety Report 9283758 (Version 1)
Quarter: 2013Q2

REPORT INFORMATION
  Report Type: Spontaneous
  Country: US (occurrence: US)
  Receive Date: 20130510
  Receipt Date: 20130510
  Transmission Date: 20140414
  Serious: Yes (Hospitalization)
  Sender: FDA-Public Use
  Company Number: US-JNJFOC-20130500740

PATIENT
  Age: 78 Year
  Sex: Female

DRUGS (7)
  1. REMICADE [Suspect]
     Indication: PRODUCT USED FOR UNKNOWN INDICATION
     Route: 042
     Dates: start: 201301
  2. HUMIRA [Suspect]
     Indication: PSORIASIS
     Route: 065
     Dates: start: 201303
  3. HUMIRA [Suspect]
     Indication: PSORIASIS
     Route: 065
     Dates: start: 2012, end: 201212
  4. METHOTREXATE [Concomitant]
     Indication: RHEUMATOID ARTHRITIS
     Route: 065
  5. LISINOPRIL [Concomitant]
     Indication: BLOOD PRESSURE ABNORMAL
     Route: 065
  6. HCTZ [Concomitant]
     Indication: BLOOD PRESSURE ABNORMAL
     Route: 065
  7. SYNTHROID [Concomitant]
     Indication: HYPOTHYROIDISM
     Dosage: FOR YEARS
     Route: 065

REACTIONS (1)
  - Ischaemic stroke [Unknown]
